FAERS Safety Report 8730124 (Version 2)
Quarter: 2015Q2

REPORT INFORMATION
  Report Type: Report from Study
  Country: US (occurrence: US)
  Receive Date: 20120817
  Receipt Date: 20150407
  Transmission Date: 20150821
  Serious: Yes (Other)
  Sender: FDA-Public Use
  Company Number: US-ROCHE-1101296

PATIENT
  Sex: Female

DRUGS (9)
  1. ACTIVASE [Suspect]
     Active Substance: ALTEPLASE
     Indication: MYOCARDIAL INFARCTION
     Route: 042
  2. NITROGLYCERIN. [Concomitant]
     Active Substance: NITROGLYCERIN
     Route: 065
  3. DOXEPIN [Concomitant]
     Active Substance: DOXEPIN
     Route: 065
  4. TRIFLUOPERAZINE [Concomitant]
     Active Substance: TRIFLUOPERAZINE\TRIFLUOPERAZINE HYDROCHLORIDE
     Route: 065
  5. ASPIRIN. [Concomitant]
     Active Substance: ASPIRIN
     Route: 065
  6. PROCARDIA (UNITED STATES) [Concomitant]
     Route: 065
  7. LOTENSIN (UNITED STATES) [Concomitant]
     Route: 065
  8. ACTIVASE [Suspect]
     Active Substance: ALTEPLASE
     Route: 042
  9. ACTIVASE [Suspect]
     Active Substance: ALTEPLASE
     Route: 042

REACTIONS (7)
  - Oedema peripheral [Unknown]
  - Haemorrhage [Unknown]
  - Dyspnoea [Unknown]
  - Erythema [Unknown]
  - Chest pain [Recovered/Resolved]
  - Pain in extremity [Unknown]
  - Tenderness [Unknown]
